FAERS Safety Report 8301802-1 (Version None)
Quarter: 2012Q2

REPORT INFORMATION
  Report Type: 
  Country: None (occurrence: None)
  Receive Date: 20120418
  Receipt Date: 20120418
  Transmission Date: 20120825
  Serious: Yes (Other)
  Sender: FDA-Public Use
  Company Number: None

PATIENT
  Sex: Female
  Weight: 67.3 kg

DRUGS (1)
  1. FLUOROURACIL [Suspect]
     Indication: ACTINIC KERATOSIS
     Dosage: COVER FACE AND EARS 2 X DAY TOPICAL
     Route: 061
     Dates: start: 20120127, end: 20120211

REACTIONS (5)
  - ABDOMINAL PAIN UPPER [None]
  - VOMITING [None]
  - DIARRHOEA HAEMORRHAGIC [None]
  - DIARRHOEA [None]
  - GASTROENTERITIS VIRAL [None]
